FAERS Safety Report 5917733-8 (Version None)
Quarter: 2008Q4

REPORT INFORMATION
  Report Type: 
  Country: None (occurrence: None)
  Receive Date: 20081014
  Receipt Date: 20081006
  Transmission Date: 20090506
  Serious: Yes (Other)
  Sender: FDA-Public Use
  Company Number: US-BAYER-200812753BCC

PATIENT
  Age: 75 Year
  Sex: Female
  Weight: 68 kg

DRUGS (7)
  1. ALKA SELTZER PLUS SPARKLING ORIGINAL COLD EFFERVESCENT TABLETS [Suspect]
     Indication: SINUS HEADACHE
     Dosage: AS USED: 2 DF
     Route: 048
  2. ALKA SELTZER PLUS SPARKLING ORIGINAL COLD EFFERVESCENT TABLETS [Suspect]
     Dosage: AS USED: 2 DF
     Route: 048
     Dates: end: 20080703
  3. SINGULAIR [Concomitant]
  4. FEMARA [Concomitant]
  5. BISOPROLOL [Concomitant]
  6. LISINOPRIL [Concomitant]
  7. ARMOUR THYROID [Concomitant]

REACTIONS (1)
  - HAEMOPTYSIS [None]
